FAERS Safety Report 12583264 (Version 2)
Quarter: 2016Q3

REPORT INFORMATION
  Report Type: Spontaneous
  Country: DE (occurrence: DE)
  Receive Date: 20160722
  Receipt Date: 20160930
  Transmission Date: 20161109
  Serious: Yes (Hospitalization, Other)
  Sender: FDA-Public Use
  Company Number: PHHY2016DE071136

PATIENT
  Sex: Male

DRUGS (2)
  1. TASIGNA [Suspect]
     Active Substance: NILOTINIB
     Indication: CHRONIC MYELOID LEUKAEMIA
     Dosage: 200 MG, BID
     Route: 048
     Dates: start: 201106, end: 20121025
  2. TASIGNA [Suspect]
     Active Substance: NILOTINIB
     Dosage: 200 MG, BID
     Route: 048
     Dates: start: 20121028, end: 201309

REACTIONS (8)
  - Chest pain [Unknown]
  - Skin lesion [Unknown]
  - Pain [Recovered/Resolved]
  - Dyspnoea [Unknown]
  - Angina pectoris [Unknown]
  - Fatigue [Unknown]
  - Cardiac failure [Unknown]
  - Burns second degree [Recovered/Resolved with Sequelae]

NARRATIVE: CASE EVENT DATE: 201206
